FAERS Safety Report 23457605 (Version 1)
Quarter: 2024Q1

REPORT INFORMATION
  Report Type: Spontaneous
  Country: DE (occurrence: None)
  Receive Date: 20240130
  Receipt Date: 20240130
  Transmission Date: 20240410
  Serious: Yes (Life-Threatening)
  Sender: FDA-Public Use
  Company Number: 2024A023452

PATIENT
  Sex: Male

DRUGS (3)
  1. CALQUENCE [Suspect]
     Active Substance: ACALABRUTINIB
     Route: 048
  2. VENETOCLAX [Suspect]
     Active Substance: VENETOCLAX
  3. VENETOCLAX [Suspect]
     Active Substance: VENETOCLAX

REACTIONS (3)
  - Neutropenia [Unknown]
  - Blood test abnormal [Unknown]
  - Off label use [Unknown]
